FAERS Safety Report 10296795 (Version 2)
Quarter: 2014Q3

REPORT INFORMATION
  Report Type: Spontaneous
  Country: US (occurrence: None)
  Receive Date: 20140708
  Receipt Date: 20140728
  Transmission Date: 20150326
  Serious: Yes (Hospitalization)
  Sender: FDA-Public Use
  Company Number: US-000923

PATIENT
  Age: 53 Year
  Sex: Male

DRUGS (8)
  1. VITAMIN D [Concomitant]
     Active Substance: CHOLECALCIFEROL
  2. KLOR-CON [Concomitant]
     Active Substance: POTASSIUM CHLORIDE
  3. SOLUTIONS FOR PARENTERAL NUTRITION [Concomitant]
     Active Substance: AMINO ACIDS\DEXTROSE\ELECTROLYTES NOS
  4. LORAZEPAM. [Concomitant]
     Active Substance: LORAZEPAM
  5. GATTEX [Suspect]
     Active Substance: TEDUGLUTIDE\WATER
     Indication: SHORT-BOWEL SYNDROME
     Dosage: 0.34 MG QE, STREN/VOLU: 0.34 ML /GREQU: ONCE A DAY SUBCUTANEOUS
     Route: 058
     Dates: start: 20140201, end: 20140316
  6. PERCOCET [Concomitant]
     Active Substance: ACETAMINOPHEN\OXYCODONE HYDROCHLORIDE
  7. IMODIUM [Concomitant]
     Active Substance: LOPERAMIDE HYDROCHLORIDE
  8. VITAMIN B12 [Concomitant]
     Active Substance: CYANOCOBALAMIN

REACTIONS (13)
  - Pruritus [None]
  - Feeling hot [None]
  - Insomnia [None]
  - Gastrointestinal stoma output increased [None]
  - Diarrhoea [None]
  - Decreased appetite [None]
  - Drug ineffective [None]
  - Burning sensation [None]
  - Weight decreased [None]
  - Pain in extremity [None]
  - Dehydration [None]
  - Abdominal pain [None]
  - Gastrointestinal stoma complication [None]

NARRATIVE: CASE EVENT DATE: 20140201
